FAERS Safety Report 9021991 (Version 1)
Quarter: 2013Q1

REPORT INFORMATION
  Report Type: Spontaneous
  Country: US (occurrence: US)
  Receive Date: 20130118
  Receipt Date: 20130118
  Transmission Date: 20140127
  Serious: Yes (Hospitalization)
  Sender: FDA-Public Use
  Company Number: US-SANOFI-AVENTIS-2012SA008595

PATIENT
  Age: 58 Year
  Sex: Male

DRUGS (13)
  1. LASIX [Suspect]
     Indication: OEDEMA PERIPHERAL
     Dosage: FREQUENCY BID, PRN
     Route: 048
     Dates: start: 20090828
  2. LASIX [Suspect]
     Indication: OEDEMA PERIPHERAL
     Dosage: FREQUENCY BID, PRN
     Route: 048
     Dates: start: 20111110, end: 20111113
  3. PLACEBO [Suspect]
     Indication: HEPATIC ENCEPHALOPATHY
     Route: 048
     Dates: start: 20111031, end: 20120124
  4. FERROUS SULFATE [Concomitant]
     Dates: start: 20081229
  5. INSULIN GLARGINE [Concomitant]
     Dates: start: 20090928
  6. LACTULOSE [Concomitant]
     Dates: start: 20081230
  7. LANSOPRAZOLE [Concomitant]
     Dates: start: 20110805
  8. MAGNESIUM OXIDE [Concomitant]
     Dates: start: 20100328
  9. PROPRANOLOL [Concomitant]
     Dates: start: 20081230
  10. RIFAXIMIN [Concomitant]
     Dates: start: 20090123
  11. THIAMINE [Concomitant]
     Dates: start: 20111002
  12. NOVOLOG [Concomitant]
     Dates: start: 20071107
  13. ALDACTONE [Concomitant]

REACTIONS (1)
  - Hepatic encephalopathy [Recovered/Resolved]
